FAERS Safety Report 21962255 (Version 2)
Quarter: 2023Q2

REPORT INFORMATION
  Report Type: Spontaneous
  Country: US (occurrence: US)
  Receive Date: 20230207
  Receipt Date: 20230512
  Transmission Date: 20230722
  Serious: No
  Sender: FDA-Public Use
  Company Number: US-APOTEX-2023AP000065

PATIENT
  Sex: Male

DRUGS (1)
  1. BRIMONIDINE TARTRATE [Suspect]
     Active Substance: BRIMONIDINE TARTRATE
     Indication: Product used for unknown indication
     Dosage: 2 GTT DROPS, BID (IN MORNING AND NIGHT)
     Route: 047

REACTIONS (3)
  - Product dose omission issue [Unknown]
  - Product container seal issue [Unknown]
  - Wrong technique in device usage process [Unknown]
